FAERS Safety Report 11990831 (Version 1)
Quarter: 2016Q1

REPORT INFORMATION
  Report Type: Spontaneous
  Country: US (occurrence: US)
  Receive Date: 20160202
  Receipt Date: 20160202
  Transmission Date: 20160526
  Serious: Yes (Other)
  Sender: FDA-Public Use
  Company Number: US-009507513-1602USA000597

PATIENT
  Age: 90 Year
  Sex: Male

DRUGS (1)
  1. KEYTRUDA [Suspect]
     Active Substance: PEMBROLIZUMAB
     Indication: MALIGNANT MELANOMA
     Dosage: UNSPECIFIED NUMBER OF INFUSIONS

REACTIONS (4)
  - Constipation [Unknown]
  - Malignant neoplasm progression [Unknown]
  - Defaecation urgency [Unknown]
  - Insomnia [Unknown]
